FAERS Safety Report 10183634 (Version 2)
Quarter: 2014Q3

REPORT INFORMATION
  Report Type: Spontaneous
  Country: DE (occurrence: DE)
  Receive Date: 20140520
  Receipt Date: 20140714
  Transmission Date: 20150326
  Serious: Yes (Hospitalization)
  Sender: FDA-Public Use
  Company Number: DE-GLAXOSMITHKLINE-D0083997A

PATIENT
  Age: 29 Year
  Sex: Female
  Weight: 64 kg

DRUGS (8)
  1. BENLYSTA [Concomitant]
     Active Substance: BELIMUMAB
     Indication: SYSTEMIC LUPUS ERYTHEMATOSUS
     Route: 042
     Dates: start: 201402, end: 201402
  2. VIAGRA [Concomitant]
     Active Substance: SILDENAFIL CITRATE
     Indication: PULMONARY ARTERIAL HYPERTENSION
     Dosage: 25MG FOUR TIMES PER DAY
     Route: 048
     Dates: start: 2004
  3. QUENSYL [Concomitant]
     Active Substance: HYDROXYCHLOROQUINE
     Indication: SYSTEMIC LUPUS ERYTHEMATOSUS
     Dosage: 400MG IN THE MORNING
     Route: 048
     Dates: start: 2004
  4. PREDNISOLON [Concomitant]
     Active Substance: PREDNISOLONE
     Indication: SYSTEMIC LUPUS ERYTHEMATOSUS
     Dosage: 7.5MG IN THE MORNING
     Route: 048
     Dates: start: 2014
  5. TRACLEER [Concomitant]
     Active Substance: BOSENTAN\BOSENTAN MONOHYDRATE
     Indication: PULMONARY ARTERIAL HYPERTENSION
     Dosage: 125MG TWICE PER DAY
     Route: 048
     Dates: start: 2004
  6. BENLYSTA [Suspect]
     Active Substance: BELIMUMAB
     Indication: SYSTEMIC LUPUS ERYTHEMATOSUS
     Dosage: 640MG SINGLE DOSE
     Route: 042
     Dates: start: 20140306, end: 20140306
  7. AZATHIOPRINE. [Concomitant]
     Active Substance: AZATHIOPRINE
     Indication: SYSTEMIC LUPUS ERYTHEMATOSUS
     Dosage: 50MG TWICE PER DAY
     Route: 048
     Dates: start: 2013
  8. BENLYSTA [Suspect]
     Active Substance: BELIMUMAB
     Indication: SYSTEMIC LUPUS ERYTHEMATOSUS
     Dosage: 120MG SINGLE DOSE
     Route: 042
     Dates: start: 20140404, end: 20140404

REACTIONS (14)
  - Herpes virus infection [Recovered/Resolved]
  - Oral mucosa erosion [Recovered/Resolved]
  - Oral herpes [Recovered/Resolved]
  - Oral mucosa erosion [Recovered/Resolved]
  - Episcleritis [Recovered/Resolved]
  - Erythema multiforme [Recovered/Resolved]
  - Oral herpes [Recovered/Resolved]
  - Herpes virus infection [Recovered/Resolved]
  - Episcleritis [Recovered/Resolved]
  - Erythema multiforme [Recovered/Resolved]
  - Genital erosion [Recovered/Resolved]
  - Conjunctivitis [Recovered/Resolved]
  - Conjunctivitis [Recovered/Resolved]
  - Genital erosion [Recovered/Resolved]

NARRATIVE: CASE EVENT DATE: 20140314
